FAERS Safety Report 14764753 (Version 2)
Quarter: 2020Q4

REPORT INFORMATION
  Report Type: Spontaneous
  Country: FR (occurrence: FR)
  Receive Date: 20180416
  Receipt Date: 20201127
  Transmission Date: 20210113
  Serious: Yes (Life-Threatening, Other)
  Sender: FDA-Public Use
  Company Number: FR-SA-2018SA104673

PATIENT

DRUGS (8)
  1. LOVENOX [Suspect]
     Active Substance: ENOXAPARIN SODIUM
     Indication: MYOCARDIAL ISCHAEMIA
     Dosage: 12000 IU,QD
     Route: 058
     Dates: start: 20180310, end: 20180316
  2. INEXIUM [ESOMEPRAZOLE MAGNESIUM] [Concomitant]
     Active Substance: ESOMEPRAZOLE MAGNESIUM
     Dosage: UNK UNK,UNK
     Route: 065
  3. TAREG [Concomitant]
     Active Substance: VALSARTAN
     Dosage: UNK
     Route: 065
  4. FLECAINE [Concomitant]
     Active Substance: FLECAINIDE
     Dosage: UNK UNK,UNK
     Route: 065
  5. TIMOFEROL [Concomitant]
     Active Substance: ASCORBIC ACID\FERROUS SULFATE
     Dosage: UNK
     Route: 065
  6. ADANCOR [Concomitant]
     Active Substance: NICORANDIL
     Dosage: UNK UNK,UNK
     Route: 065
  7. CHRONADALATE [Concomitant]
     Active Substance: NIFEDIPINE
     Dosage: UNK
     Route: 065
  8. ELISOR [Concomitant]
     Active Substance: PRAVASTATIN SODIUM
     Dosage: UNK UNK,UNK
     Route: 065

REACTIONS (4)
  - Acute kidney injury [Recovered/Resolved]
  - Haematoma muscle [Recovering/Resolving]
  - Shock haemorrhagic [Recovered/Resolved]
  - Anaemia [Recovering/Resolving]

NARRATIVE: CASE EVENT DATE: 20180316
